FAERS Safety Report 5498220-0 (Version None)
Quarter: 2007Q4

REPORT INFORMATION
  Report Type: 
  Country: None (occurrence: None)
  Receive Date: 20071025
  Receipt Date: 20070413
  Transmission Date: 20080405
  Serious: No
  Sender: FDA-Public Use
  Company Number: A0647207A

PATIENT
  Age: 9 Year
  Sex: Male

DRUGS (1)
  1. ADVAIR DISKUS 100/50 [Suspect]
     Indication: ASTHMA
     Dosage: 1PUFF PER DAY
     Route: 055
     Dates: start: 20040101

REACTIONS (5)
  - ABNORMAL BEHAVIOUR [None]
  - INSOMNIA [None]
  - MOOD ALTERED [None]
  - PEAK EXPIRATORY FLOW RATE DECREASED [None]
  - PSYCHOMOTOR HYPERACTIVITY [None]
